FAERS Safety Report 16329812 (Version 1)
Quarter: 2019Q2

REPORT INFORMATION
  Report Type: Spontaneous
  Country: FR (occurrence: FR)
  Receive Date: 20190520
  Receipt Date: 20190520
  Transmission Date: 20190711
  Serious: Yes (Other)
  Sender: FDA-Public Use
  Company Number: FR-ALK-ABELLO A/S-2019AA001830

PATIENT

DRUGS (1)
  1. GRAZAX [Suspect]
     Active Substance: PHLEUM PRATENSE POLLEN
     Indication: IMMUNE TOLERANCE INDUCTION
     Dosage: UNK
     Dates: start: 201811, end: 201903

REACTIONS (3)
  - Tonsillitis bacterial [Recovered/Resolved]
  - Asthma [Recovered/Resolved]
  - Asthmatic crisis [Unknown]

NARRATIVE: CASE EVENT DATE: 201812
